FAERS Safety Report 10602392 (Version 1)
Quarter: 2014Q4

REPORT INFORMATION
  Report Type: Spontaneous
  Country: DE (occurrence: DE)
  Receive Date: 20141124
  Receipt Date: 20141124
  Transmission Date: 20150529
  Serious: Yes (Hospitalization, Other)
  Sender: FDA-Public Use
  Company Number: DE-SHIRE-DE201408092

PATIENT
  Age: 17 Year
  Sex: Male
  Weight: 30 kg

DRUGS (4)
  1. LEVETIRACETAM. [Concomitant]
     Active Substance: LEVETIRACETAM
     Indication: SEIZURE
     Dosage: 250 MG, 1X/DAY:QD
     Route: 048
  2. ELAPRASE [Suspect]
     Active Substance: IDURSULFASE
     Indication: MUCOPOLYSACCHARIDOSIS
     Dosage: 18 MG, 1X/WEEK
     Route: 041
     Dates: start: 2007
  3. DOMPERIDON                         /00498201/ [Concomitant]
     Indication: PRODUCT USED FOR UNKNOWN INDICATION
     Dosage: 2 X 10 MG,  UNKNOWN
     Route: 065
  4. RIVOTRIL [Concomitant]
     Active Substance: CLONAZEPAM
     Indication: SEIZURE
     Dosage: 1.5 MG, 1X/DAY:QD
     Route: 048

REACTIONS (2)
  - Subileus [Unknown]
  - Pancreatitis relapsing [Unknown]

NARRATIVE: CASE EVENT DATE: 20141029
